FAERS Safety Report 6563638-1 (Version None)
Quarter: 2010Q1

REPORT INFORMATION
  Report Type: 
  Country: None (occurrence: None)
  Receive Date: 20100130
  Receipt Date: 20091217
  Transmission Date: 20100710
  Serious: No
  Sender: FDA-Public Use
  Company Number: US-ABBOTT-09P-163-0616077-00

PATIENT
  Sex: Male
  Weight: 72.64 kg

DRUGS (3)
  1. HUMIRA [Suspect]
     Indication: ANKYLOSING SPONDYLITIS
     Dates: start: 20090801
  2. CADUET [Concomitant]
     Indication: HYPERTENSION
  3. CITALOPRAM [Concomitant]
     Indication: DEPRESSION

REACTIONS (4)
  - COUGH [None]
  - ERECTILE DYSFUNCTION [None]
  - FEELING ABNORMAL [None]
  - INFLUENZA [None]
